FAERS Safety Report 24763525 (Version 1)
Quarter: 2024Q4

REPORT INFORMATION
  Report Type: Spontaneous
  Country: US (occurrence: US)
  Receive Date: 20241223
  Receipt Date: 20241223
  Transmission Date: 20250114
  Serious: No
  Sender: ACCORD
  Company Number: US-Accord-415556

PATIENT
  Sex: Male
  Weight: 92.99 kg

DRUGS (1)
  1. METHYLPHENIDATE HYDROCHLORIDE [Suspect]
     Active Substance: METHYLPHENIDATE HYDROCHLORIDE
     Indication: Attention deficit hyperactivity disorder
     Dosage: 3 TABLETS 5 TIMES DAILY
     Dates: start: 202403

REACTIONS (1)
  - Drug ineffective [Unknown]
